FAERS Safety Report 11030084 (Version 2)
Quarter: 2015Q2

REPORT INFORMATION
  Report Type: Spontaneous
  Country: US (occurrence: US)
  Receive Date: 20150415
  Receipt Date: 20150522
  Transmission Date: 20150821
  Serious: Yes (Hospitalization)
  Sender: FDA-Public Use
  Company Number: US-BIOGENIDEC-2015BI045705

PATIENT
  Age: 21 Year
  Sex: Female

DRUGS (1)
  1. TECFIDERA [Suspect]
     Active Substance: DIMETHYL FUMARATE
     Indication: MULTIPLE SCLEROSIS
     Route: 048
     Dates: start: 20141017

REACTIONS (13)
  - Memory impairment [Unknown]
  - Paraesthesia [Unknown]
  - VIIth nerve paralysis [Unknown]
  - Feeling cold [Unknown]
  - Hypertension [Recovered/Resolved]
  - Mobility decreased [Unknown]
  - Heart rate increased [Recovered/Resolved]
  - Dizziness [Recovered/Resolved]
  - Fatigue [Unknown]
  - Balance disorder [Unknown]
  - Constipation [Unknown]
  - Fall [Recovered/Resolved]
  - Diplopia [Not Recovered/Not Resolved]

NARRATIVE: CASE EVENT DATE: 20150306
